FAERS Safety Report 9758769 (Version 1)
Quarter: 2013Q4

REPORT INFORMATION
  Report Type: Spontaneous
  Country: US (occurrence: None)
  Receive Date: 20131216
  Receipt Date: 20131216
  Transmission Date: 20140711
  Serious: Yes (Other)
  Sender: FDA-Public Use
  Company Number: 069268

PATIENT
  Sex: Male
  Weight: 78 kg

DRUGS (4)
  1. CIMZIA [Suspect]
     Indication: RHEUMATOID ARTHRITIS
     Dosage: (400 MG 1X/MONTH, DOSE STRENGH : 200 MG SUBCUTANEOUS)
     Dates: start: 20120111, end: 20121123
  2. SPIRIVA [Concomitant]
  3. NEXIUM [Concomitant]
  4. PREDNISONE [Concomitant]

REACTIONS (1)
  - Neuropathy peripheral [None]
